FAERS Safety Report 13704340 (Version 1)
Quarter: 2017Q2

REPORT INFORMATION
  Report Type: Spontaneous
  Country: IT (occurrence: IT)
  Receive Date: 20170630
  Receipt Date: 20170630
  Transmission Date: 20170830
  Serious: Yes (Other)
  Sender: FDA-Public Use
  Company Number: IT-CONCORDIA PHARMACEUTICALS INC.-E2B_00008208

PATIENT
  Age: 33 Year
  Sex: Female

DRUGS (6)
  1. VALPROIC ACID. [Concomitant]
     Active Substance: VALPROIC ACID
     Indication: EPILEPSY
     Dosage: UNKNOWN
     Route: 065
  2. LEVETIRACETAM. [Suspect]
     Active Substance: LEVETIRACETAM
     Indication: EPILEPSY
  3. ZONISAMIDE. [Suspect]
     Active Substance: ZONISAMIDE
     Indication: EPILEPSY
     Dosage: UNKNOWN
     Route: 048
  4. ZONISAMIDE. [Suspect]
     Active Substance: ZONISAMIDE
     Indication: EPILEPSY
  5. CARBAMAZEPINE. [Concomitant]
     Active Substance: CARBAMAZEPINE
     Indication: EPILEPSY
     Dosage: UNKNOWN
     Route: 065
  6. LEVETIRACETAM. [Suspect]
     Active Substance: LEVETIRACETAM
     Indication: EPILEPSY
     Dosage: UNKNOWN
     Route: 065

REACTIONS (1)
  - Acute psychosis [Recovered/Resolved]
